FAERS Safety Report 5256185-0 (Version None)
Quarter: 2007Q1

REPORT INFORMATION
  Report Type: 
  Country: None (occurrence: None)
  Receive Date: 20070306
  Receipt Date: 20070227
  Transmission Date: 20070707
  Serious: Yes (Other)
  Sender: FDA-Public Use
  Company Number: 2007UW03444

PATIENT
  Age: 48 Year
  Sex: Male

DRUGS (3)
  1. SEROQUEL [Suspect]
     Indication: BIPOLAR DISORDER
     Route: 048
  2. SEROQUEL [Suspect]
     Route: 048
  3. ZOLOFT [Concomitant]
     Route: 048

REACTIONS (5)
  - BLOOD TRIGLYCERIDES [None]
  - CEREBROVASCULAR ACCIDENT [None]
  - EYE PAIN [None]
  - ILL-DEFINED DISORDER [None]
  - MOTOR DYSFUNCTION [None]
